FAERS Safety Report 6592896-2 (Version None)
Quarter: 2010Q1

REPORT INFORMATION
  Report Type: 
  Country: None (occurrence: None)
  Receive Date: 20100212
  Receipt Date: 20100203
  Transmission Date: 20100710
  Serious: Yes (Hospitalization, Other)
  Sender: FDA-Public Use
  Company Number: 2010SP005965

PATIENT
  Age: 73 Year
  Sex: Male

DRUGS (2)
  1. ONCOTICE [Suspect]
     Indication: DRUG USE FOR UNKNOWN INDICATION
     Dates: start: 20091223
  2. ONCOTICE [Suspect]
     Indication: DRUG USE FOR UNKNOWN INDICATION
     Dates: start: 20091230

REACTIONS (10)
  - BLOOD CREATININE INCREASED [None]
  - CATHETER SITE HAEMORRHAGE [None]
  - CHOLANGITIS [None]
  - DRUG INTOLERANCE [None]
  - DYSURIA [None]
  - HEPATIC ENZYME INCREASED [None]
  - PAIN [None]
  - POLLAKIURIA [None]
  - PYREXIA [None]
  - VASCULITIS [None]
